FAERS Safety Report 15618682 (Version 1)
Quarter: 2018Q4

REPORT INFORMATION
  Report Type: Spontaneous
  Country: US (occurrence: US)
  Receive Date: 20181114
  Receipt Date: 20181114
  Transmission Date: 20190205
  Serious: Yes (Hospitalization)
  Sender: FDA-Public Use
  Company Number: None

PATIENT
  Sex: Female

DRUGS (18)
  1. VITAMIN B12 [Concomitant]
     Active Substance: CYANOCOBALAMIN
  2. POT CL MICRO 20 MEQ [Concomitant]
     Active Substance: POTASSIUM CHLORIDE
  3. SIMVASTATIN. [Concomitant]
     Active Substance: SIMVASTATIN
  4. MUCINEX [Concomitant]
     Active Substance: GUAIFENESIN
  5. VITAMIN B6 [Concomitant]
     Active Substance: PYRIDOXINE HYDROCHLORIDE
  6. TUMS EX [Concomitant]
     Active Substance: CALCIUM CARBONATE
  7. ESBRIET [Suspect]
     Active Substance: PIRFENIDONE
     Indication: IDIOPATHIC PULMONARY FIBROSIS
     Route: 048
     Dates: start: 20150512
  8. FOLIC ACID. [Concomitant]
     Active Substance: FOLIC ACID
  9. FUROSEMIDE. [Concomitant]
     Active Substance: FUROSEMIDE
  10. KLOR-CON [Concomitant]
     Active Substance: POTASSIUM CHLORIDE
  11. LUMIGAN [Concomitant]
     Active Substance: BIMATOPROST
  12. RANITIDINE. [Concomitant]
     Active Substance: RANITIDINE
  13. ZOCOR [Concomitant]
     Active Substance: SIMVASTATIN
  14. BUDESONIDE. [Concomitant]
     Active Substance: BUDESONIDE
  15. TUMS ULTRA [Concomitant]
     Active Substance: CALCIUM CARBONATE
  16. DYAZIDE [Concomitant]
     Active Substance: HYDROCHLOROTHIAZIDE\TRIAMTERENE
  17. PROAIR HFA [Concomitant]
     Active Substance: ALBUTEROL SULFATE
  18. ZANTAC [Concomitant]
     Active Substance: RANITIDINE HYDROCHLORIDE

REACTIONS (3)
  - Rhinovirus infection [None]
  - Product dose omission [None]
  - Pneumonia [None]
